FAERS Safety Report 6906983-X (Version None)
Quarter: 2010Q3

REPORT INFORMATION
  Report Type: 
  Country: None (occurrence: None)
  Receive Date: 20100804
  Receipt Date: 20080604
  Transmission Date: 20110219
  Serious: Yes (Other)
  Sender: FDA-Public Use
  Company Number: US-PFIZER INC-2007034852

PATIENT
  Sex: Male
  Weight: 83.5 kg

DRUGS (7)
  1. MARAVIROC [Suspect]
     Indication: HIV TEST POSITIVE
     Route: 048
     Dates: start: 20060329
  2. RITONAVIR [Concomitant]
     Route: 048
     Dates: start: 20060324
  3. TRICOR [Concomitant]
     Route: 048
     Dates: start: 20040503
  4. DAPSONE [Concomitant]
     Route: 048
     Dates: start: 20060116
  5. INVIRASE [Concomitant]
     Route: 048
     Dates: start: 20060324
  6. FOSAMPRENAVIR [Concomitant]
     Route: 048
     Dates: start: 20060324
  7. VIDEX [Concomitant]
     Route: 048
     Dates: start: 20060324

REACTIONS (1)
  - SQUAMOUS CELL CARCINOMA [None]
